FAERS Safety Report 16355477 (Version 1)
Quarter: 2019Q2

REPORT INFORMATION
  Report Type: Spontaneous
  Country: ES (occurrence: ES)
  Receive Date: 20190525
  Receipt Date: 20190525
  Transmission Date: 20190711
  Serious: Yes (Hospitalization)
  Sender: FDA-Public Use
  Company Number: ES-009507513-1905ESP009716

PATIENT
  Age: 55 Year
  Sex: Male

DRUGS (3)
  1. SINEMET PLUS 25/100 MG COMPRIMIDOS [Suspect]
     Active Substance: CARBIDOPA\LEVODOPA
     Indication: PARKINSON^S DISEASE
     Dosage: 1 TABLET THRICE PER DAY
     Route: 048
     Dates: start: 20171222
  2. QUETIAPINE FUMARATE. [Interacting]
     Active Substance: QUETIAPINE FUMARATE
     Indication: PSYCHOTIC DISORDER
     Dosage: 25 MG ONCE DAILY
     Route: 048
     Dates: start: 20171222, end: 20180106
  3. PRAMIPEXOLE. [Interacting]
     Active Substance: PRAMIPEXOLE
     Indication: PARKINSON^S DISEASE
     Dosage: 2.36 MG EVERY DAY
     Route: 048
     Dates: start: 201605, end: 20180109

REACTIONS (2)
  - Acute psychosis [Recovered/Resolved]
  - Contraindicated product prescribed [Recovered/Resolved]

NARRATIVE: CASE EVENT DATE: 20171222
